FAERS Safety Report 5360324-0 (Version None)
Quarter: 2007Q2

REPORT INFORMATION
  Report Type: 
  Country: None (occurrence: None)
  Receive Date: 20070612
  Receipt Date: 20070530
  Transmission Date: 20071010
  Serious: Yes (Death)
  Sender: FDA-Public Use
  Company Number: 16711

PATIENT

DRUGS (2)
  1. BLEOMYCIN [Suspect]
     Indication: HODGKIN'S DISEASE
  2. LOW-DOSE INVOLVED FIELD RADIOTHERAPY [Concomitant]

REACTIONS (2)
  - DRUG TOXICITY [None]
  - PULMONARY TOXICITY [None]
